FAERS Safety Report 6541011-X (Version None)
Quarter: 2010Q1

REPORT INFORMATION
  Report Type: 
  Country: None (occurrence: None)
  Receive Date: 20100118
  Receipt Date: 20100112
  Transmission Date: 20100710
  Serious: Yes (Other)
  Sender: FDA-Public Use
  Company Number: CHPA2010US01090

PATIENT
  Age: 41 Year
  Sex: Female
  Weight: 163.27 kg

DRUGS (6)
  1. MAALOX ANTACID/ANTIGAS MAX QDTABS WILDB (NCH) [Suspect]
     Indication: PROPHYLAXIS
     Dosage: UNK, UNK
     Route: 048
  2. MAALOX ANTACID/ANTIGAS MAX QDTABS WILDB (NCH) [Suspect]
     Indication: GASTROOESOPHAGEAL REFLUX DISEASE
  3. MAALOX ANTACID/ANTIGAS MAX QDTABS WILDB (NCH) [Suspect]
     Indication: GASTRITIS
  4. MAALOX ANTACID/ANTIGAS MAX QDTABS WILDB (NCH) [Suspect]
     Indication: IRRITABLE BOWEL SYNDROME
  5. PREDNISOLONE [Concomitant]
     Indication: ASTHMA
     Dosage: UNK
  6. PAMELOR [Concomitant]
     Dosage: UNK

REACTIONS (4)
  - INTENTIONAL DRUG MISUSE [None]
  - NEPHROLITHIASIS [None]
  - OFF LABEL USE [None]
  - RENAL STONE REMOVAL [None]
